FAERS Safety Report 5931618-2 (Version None)
Quarter: 2008Q4

REPORT INFORMATION
  Report Type: 
  Country: None (occurrence: None)
  Receive Date: 20081027
  Receipt Date: 20081023
  Transmission Date: 20090506
  Serious: Yes (Hospitalization)
  Sender: FDA-Public Use
  Company Number: US-BRISTOL-MYERS SQUIBB COMPANY-14381305

PATIENT
  Age: 78 Year
  Sex: Male
  Weight: 79 kg

DRUGS (3)
  1. ERBITUX [Suspect]
     Indication: HEAD AND NECK CANCER
     Dosage: THERAPY START DATE 06AUG08. LAST ADMINISTRATION DATE 22SEP08.
     Dates: start: 20080811, end: 20080811
  2. CISPLATIN [Suspect]
     Indication: HEAD AND NECK CANCER
     Dosage: THERAPY START DATE 06AUG08. LAST ADMINISTRATION DATE 08SEP08.
     Dates: start: 20080811, end: 20080811
  3. RADIATION THERAPY [Suspect]
     Indication: HEAD AND NECK CANCER
     Dosage: 70 DF = 70 GY. LAST TREATMENT DATE 19SEP08. NUMBER OF FRACTIONS 35. NUMBER OF ELASPSED DAYS 39.

REACTIONS (3)
  - ANOREXIA [None]
  - DEHYDRATION [None]
  - FATIGUE [None]
